FAERS Safety Report 12643575 (Version 3)
Quarter: 2016Q4

REPORT INFORMATION
  Report Type: Report from Study
  Country: US (occurrence: US)
  Receive Date: 20160811
  Receipt Date: 20161216
  Transmission Date: 20170207
  Serious: Yes (Other)
  Sender: FDA-Public Use
  Company Number: PHEH2016US020006

PATIENT
  Age: 32 Year
  Sex: Female
  Weight: 112.7 kg

DRUGS (3)
  1. GILENYA [Suspect]
     Active Substance: FINGOLIMOD HYDROCHLORIDE
     Indication: MULTIPLE SCLEROSIS
     Dosage: 0.5 MG, QD
     Route: 048
     Dates: start: 20160803
  2. GILENYA [Suspect]
     Active Substance: FINGOLIMOD HYDROCHLORIDE
     Dosage: UNK
     Route: 065
     Dates: start: 20161011
  3. GABAPENTIN. [Concomitant]
     Active Substance: GABAPENTIN
     Indication: NEURALGIA
     Dosage: 200 MG, TID
     Route: 048
     Dates: start: 20160630

REACTIONS (6)
  - Electrocardiogram QT prolonged [Recovered/Resolved]
  - Heart rate decreased [Unknown]
  - Electrocardiogram QT prolonged [Recovered/Resolved]
  - Palpitations [Unknown]
  - Ventricular extrasystoles [Unknown]
  - Supraventricular extrasystoles [Unknown]

NARRATIVE: CASE EVENT DATE: 20160803
